FAERS Safety Report 9507710 (Version 1)
Quarter: 2013Q1

REPORT INFORMATION
  Report Type: Spontaneous
  Country: US (occurrence: None)
  Receive Date: 20130305
  Receipt Date: 20130305
  Transmission Date: 20140127
  Serious: No
  Sender: FDA-Public Use
  Company Number: 163-21880-12050724

PATIENT
  Age: 52 Year
  Sex: Female
  Weight: 70.31 kg

DRUGS (3)
  1. REVLIMID (LENALIDOMIDE) (5 MILLIGRAMS, CAPSULES) [Suspect]
     Indication: MYELOPROLIFERATIVE DISORDER
     Dosage: 5MG, 1 IN 1 D, PO
     Route: 048
     Dates: start: 200908
  2. ASPIRIN (ACETLSALICYLIC) [Concomitant]
  3. MAGNESIUM (MAGNESIUM) [Concomitant]

REACTIONS (1)
  - Loss of consciousness [None]
